FAERS Safety Report 8807880 (Version 2)
Quarter: 2012Q4

REPORT INFORMATION
  Report Type: 
  Country: IT (occurrence: IT)
  Receive Date: 20120925
  Receipt Date: 20121005
  Transmission Date: 20130627
  Serious: Yes (Hospitalization)
  Sender: FDA-Public Use
  Company Number: IT-ROCHE-1134667

PATIENT
  Age: 67 Year
  Sex: Female

DRUGS (3)
  1. TORADOL [Suspect]
     Indication: PRODUCT USED FOR UNKNOWN INDICATION
     Route: 030
     Dates: start: 20120728, end: 20120801
  2. ENALAPRIL MALEATE/HYDROCHLOROTHIAZIDE [Suspect]
     Indication: HYPERTENSION
     Route: 048
     Dates: start: 20120803, end: 20120803
  3. ENAPREN [Concomitant]
     Route: 065
     Dates: start: 20100101, end: 20120802

REACTIONS (1)
  - Erythema [Recovered/Resolved]
